FAERS Safety Report 10399388 (Version 2)
Quarter: 2014Q3

REPORT INFORMATION
  Report Type: Report from Study
  Country: US (occurrence: US)
  Receive Date: 20140821
  Receipt Date: 20140821
  Transmission Date: 20150326
  Serious: Yes (Death, Other)
  Sender: FDA-Public Use
  Company Number: US-ASTELLAS-2014US010517

PATIENT
  Age: 77 Year
  Sex: Female

DRUGS (3)
  1. ERLOTINIB [Suspect]
     Active Substance: ERLOTINIB
     Indication: LUNG CANCER METASTATIC
     Route: 048
     Dates: start: 20100526, end: 20100616
  2. ERLOTINIB [Suspect]
     Active Substance: ERLOTINIB
     Indication: NON-SMALL CELL LUNG CANCER
  3. ERLOTINIB [Suspect]
     Active Substance: ERLOTINIB
     Indication: LUNG NEOPLASM MALIGNANT

REACTIONS (4)
  - Mucosal inflammation [Unknown]
  - Lung cancer metastatic [Fatal]
  - Diarrhoea [Unknown]
  - Dermatitis [Unknown]

NARRATIVE: CASE EVENT DATE: 201005
